FAERS Safety Report 4284015-2 (Version None)
Quarter: 2004Q1

REPORT INFORMATION
  Report Type: 
  Country: None (occurrence: None)
  Receive Date: 20040202
  Receipt Date: 20040121
  Transmission Date: 20041129
  Serious: Yes (Congenital Anomaly)
  Sender: FDA-Public Use
  Company Number: 000712

PATIENT
  Age: 8 Day
  Sex: Female

DRUGS (1)
  1. NORTREL 7/7/7 [Suspect]
     Dosage: UNK, UNK, UNK
     Route: 065

REACTIONS (4)
  - CLEFT PALATE [None]
  - DRUG EXPOSURE DURING PREGNANCY [None]
  - TALIPES [None]
  - UNINTENDED PREGNANCY [None]
